FAERS Safety Report 10591755 (Version 1)
Quarter: 2014Q4

REPORT INFORMATION
  Report Type: Spontaneous
  Country: US (occurrence: US)
  Receive Date: 20141118
  Receipt Date: 20141118
  Transmission Date: 20150529
  Serious: Yes (Other)
  Sender: FDA-Public Use
  Company Number: US-ASTRAZENECA-2014SE86268

PATIENT
  Age: 65 Year
  Sex: Male
  Weight: 86.2 kg

DRUGS (18)
  1. DICYCLOMINE [Concomitant]
     Active Substance: DICYCLOMINE HYDROCHLORIDE
     Indication: ABDOMINAL PAIN
     Route: 048
     Dates: start: 2012
  2. NITROGLYCERIN. [Concomitant]
     Active Substance: NITROGLYCERIN
     Indication: CHEST PAIN
     Route: 060
     Dates: start: 2008
  3. COMBIVENT [Concomitant]
     Active Substance: ALBUTEROL SULFATE\IPRATROPIUM BROMIDE
     Indication: DYSPNOEA
     Dosage: FOUR TIMES A DAY
     Route: 055
     Dates: start: 2004
  4. LANTUS [Concomitant]
     Active Substance: INSULIN GLARGINE
     Indication: DIABETES MELLITUS
  5. CARVEDILOL. [Concomitant]
     Active Substance: CARVEDILOL
     Indication: BLOOD PRESSURE ABNORMAL
     Route: 048
     Dates: start: 2012
  6. LIPITOR [Concomitant]
     Active Substance: ATORVASTATIN CALCIUM
     Indication: BLOOD CHOLESTEROL ABNORMAL
     Route: 048
     Dates: start: 1999
  7. BUDESONIDE. [Suspect]
     Active Substance: BUDESONIDE
     Indication: CROHN^S DISEASE
     Route: 048
     Dates: start: 2011
  8. COMBIVENT [Concomitant]
     Active Substance: ALBUTEROL SULFATE\IPRATROPIUM BROMIDE
     Indication: CHRONIC OBSTRUCTIVE PULMONARY DISEASE
     Dosage: FOUR TIMES A DAY
     Route: 055
     Dates: start: 2004
  9. BUMETANIDE. [Concomitant]
     Active Substance: BUMETANIDE
     Indication: PERIPHERAL SWELLING
     Route: 048
     Dates: start: 2013
  10. APIDRA SOLAR STAR [Concomitant]
     Indication: DIABETES MELLITUS
  11. RAMIPRIL. [Concomitant]
     Active Substance: RAMIPRIL
     Indication: BLOOD PRESSURE ABNORMAL
     Route: 048
     Dates: start: 2011
  12. INDOMETHACIN. [Concomitant]
     Active Substance: INDOMETHACIN
     Indication: GOUT
     Route: 048
     Dates: start: 2004
  13. ALLOPURINOL. [Concomitant]
     Active Substance: ALLOPURINOL
     Indication: GOUT
     Route: 048
     Dates: start: 2004
  14. OXYGEN. [Concomitant]
     Active Substance: OXYGEN
     Indication: DYSPNOEA
     Dosage: AT NIGHT
     Dates: start: 2001
  15. ADVAIR HFA [Concomitant]
     Active Substance: FLUTICASONE PROPIONATE\SALMETEROL XINAFOATE
     Indication: CHRONIC OBSTRUCTIVE PULMONARY DISEASE
     Dosage: FOUR TIMES A DAY
     Route: 055
     Dates: start: 2007
  16. BUDESONIDE. [Suspect]
     Active Substance: BUDESONIDE
     Indication: COLITIS
     Route: 048
     Dates: start: 2011
  17. METFORMIN [Concomitant]
     Active Substance: METFORMIN HYDROCHLORIDE
     Indication: DIABETES MELLITUS
     Route: 048
     Dates: start: 1999
  18. PREVACID [Concomitant]
     Active Substance: LANSOPRAZOLE
     Indication: GASTROOESOPHAGEAL REFLUX DISEASE
     Route: 048
     Dates: start: 2000

REACTIONS (7)
  - Nephrolithiasis [Unknown]
  - Type 1 diabetes mellitus [Unknown]
  - Abasia [Unknown]
  - Peripheral swelling [Unknown]
  - Diarrhoea [Unknown]
  - Blood glucose abnormal [Unknown]
  - Intentional product use issue [Unknown]

NARRATIVE: CASE EVENT DATE: 2011
